FAERS Safety Report 8791281 (Version 1)
Quarter: 2012Q4

REPORT INFORMATION
  Report Type: Spontaneous
  Country: US (occurrence: None)
  Receive Date: 20120914
  Receipt Date: 20120914
  Transmission Date: 20130627
  Serious: Yes (Hospitalization)
  Sender: FDA-Public Use
  Company Number: None

PATIENT
  Age: 65 Year
  Sex: Male

DRUGS (1)
  1. DOXYCYCLINE [Suspect]
     Indication: MALARIA PROPHYLAXIS
     Route: 048
     Dates: start: 20120417, end: 20120601

REACTIONS (5)
  - Eye pain [None]
  - Hypotension [None]
  - Rash pruritic [None]
  - Eyelid margin crusting [None]
  - Cough [None]
